FAERS Safety Report 9203517 (Version 1)
Quarter: 2013Q1

REPORT INFORMATION
  Report Type: Spontaneous
  Country: US (occurrence: None)
  Receive Date: 20120709
  Receipt Date: 20120709
  Transmission Date: 20140127
  Serious: Yes (Other)
  Sender: FDA-Public Use
  Company Number: PHHY2011US68534

PATIENT
  Age: 55 Year
  Sex: Female
  Weight: 88 kg

DRUGS (5)
  1. GLEEVEC (IMATINIB) [Suspect]
     Indication: CHRONIC MYELOID LEUKAEMIA
     Dosage: ALTERNATE WITH 600 MG QOD
     Route: 048
     Dates: start: 2006
  2. VITAMIN D (ERGOCALCIFEROL) [Concomitant]
  3. KCL (POTASSIUM CHLORIDE) [Concomitant]
  4. CALCIUM (CALCIUM) [Concomitant]
  5. POTASSIUM (POTASSIUM) [Concomitant]

REACTIONS (8)
  - Weight increased [None]
  - Nausea [None]
  - Vomiting [None]
  - Eye oedema [None]
  - Hypokalaemia [None]
  - Vision blurred [None]
  - Lacrimation increased [None]
  - Eye swelling [None]
